FAERS Safety Report 19359831 (Version 1)
Quarter: 2021Q2

REPORT INFORMATION
  Report Type: Spontaneous
  Country: JP (occurrence: JP)
  Receive Date: 20210601
  Receipt Date: 20210601
  Transmission Date: 20210717
  Serious: Yes (Disabling, Other)
  Sender: FDA-Public Use
  Company Number: JP-ELI_LILLY_AND_COMPANY-JP202105011770

PATIENT
  Age: 80 Year
  Sex: Female

DRUGS (2)
  1. DULOXETINE HYDROCHLORIDE. [Suspect]
     Active Substance: DULOXETINE HYDROCHLORIDE
     Indication: SPINAL STENOSIS
     Dosage: 20 MG, DAILY
     Route: 048
     Dates: start: 202103, end: 202104
  2. DULOXETINE HYDROCHLORIDE. [Suspect]
     Active Substance: DULOXETINE HYDROCHLORIDE
     Dosage: 40 MG, DAILY
     Route: 048
     Dates: start: 202104, end: 202105

REACTIONS (2)
  - Nephrotic syndrome [Unknown]
  - Renal impairment [Unknown]

NARRATIVE: CASE EVENT DATE: 202105
